FAERS Safety Report 5424643-1 (Version None)
Quarter: 2007Q3

REPORT INFORMATION
  Report Type: 
  Country: None (occurrence: None)
  Receive Date: 20070824
  Receipt Date: 20070821
  Transmission Date: 20080115
  Serious: Yes (Life-Threatening, Hospitalization)
  Sender: FDA-Public Use
  Company Number: GBWYE835712JUN07

PATIENT
  Sex: Female
  Weight: 70 kg

DRUGS (2)
  1. EFFEXOR XR [Suspect]
     Indication: DEPRESSION
     Route: 048
     Dates: start: 20020201, end: 20070429
  2. ZYPREXA [Suspect]
     Indication: MAJOR DEPRESSION
     Route: 048
     Dates: start: 20020201, end: 20070429

REACTIONS (1)
  - HISTIOCYTOSIS HAEMATOPHAGIC [None]
